FAERS Safety Report 8067369-0 (Version None)
Quarter: 2012Q1

REPORT INFORMATION
  Report Type: 
  Country: None (occurrence: None)
  Receive Date: 20120124
  Receipt Date: 20120123
  Transmission Date: 20120608
  Serious: No
  Sender: FDA-Public Use
  Company Number: US-PFIZER INC-2012018803

PATIENT
  Sex: Female

DRUGS (5)
  1. CHANTIX [Suspect]
     Dosage: UNK
     Route: 048
  2. SPIRIVA [Concomitant]
     Dosage: UNK
  3. FORMOTEROL FUMARATE/MOMETASONE FUROATE [Concomitant]
     Dosage: UNK
  4. CHANTIX [Suspect]
     Indication: SMOKING CESSATION THERAPY
     Dosage: 0.5 MG, UNK
     Route: 048
     Dates: start: 20120115
  5. VENTOLIN [Concomitant]
     Dosage: UNK

REACTIONS (2)
  - STRESS [None]
  - CRYING [None]
